FAERS Safety Report 10028332 (Version 2)
Quarter: 2014Q2

REPORT INFORMATION
  Report Type: Spontaneous
  Country: JP (occurrence: None)
  Receive Date: 20140319
  Receipt Date: 20140411
  Transmission Date: 20141212
  Serious: Yes (Hospitalization)
  Sender: FDA-Public Use
  Company Number: 2014CP000032

PATIENT
  Age: 45 Year
  Sex: Male

DRUGS (2)
  1. ACELIO [Suspect]
     Indication: ANALGESIC THERAPY
     Route: 042
     Dates: start: 20140212, end: 20140212
  2. ACELIO [Suspect]
     Indication: ANTIINFLAMMATORY THERAPY
     Route: 042
     Dates: start: 20140212, end: 20140212

REACTIONS (5)
  - Anaphylactic shock [None]
  - Fall [None]
  - Generalised erythema [None]
  - Malaise [None]
  - Pruritus [None]
